FAERS Safety Report 25170612 (Version 2)
Quarter: 2025Q2

REPORT INFORMATION
  Report Type: Report from Study
  Country: GB (occurrence: GB)
  Receive Date: 20250408
  Receipt Date: 20250521
  Transmission Date: 20250716
  Serious: Yes (Disabling)
  Sender: CELLTRION
  Company Number: GB-CELLTRION INC.-2025GB002824

PATIENT

DRUGS (1)
  1. INFLIXIMAB-DYYB [Suspect]
     Active Substance: INFLIXIMAB-DYYB
     Indication: Rheumatoid arthritis
     Route: 058
     Dates: start: 20241230

REACTIONS (3)
  - Migraine [Unknown]
  - Dizziness [Unknown]
  - Infection [Unknown]
